FAERS Safety Report 5569831-9 (Version None)
Quarter: 2007Q4

REPORT INFORMATION
  Report Type: 
  Country: None (occurrence: None)
  Receive Date: 20071220
  Receipt Date: 20070726
  Transmission Date: 20080405
  Serious: No
  Sender: FDA-Public Use
  Company Number: US-ABBOTT-07P-163-0365351-00

PATIENT
  Sex: Female
  Weight: 49.94 kg

DRUGS (3)
  1. OMNICEF [Suspect]
     Indication: SINUSITIS
     Route: 048
     Dates: start: 20070405, end: 20070413
  2. CETIRIZINE HYDROCHLORIDE [Concomitant]
     Indication: FOOD ALLERGY
     Route: 048
  3. HYDROXYZINE [Concomitant]
     Indication: FOOD ALLERGY
     Route: 048

REACTIONS (2)
  - HYPERSENSITIVITY [None]
  - PRURITUS [None]
